FAERS Safety Report 20329337 (Version 1)
Quarter: 2022Q1

REPORT INFORMATION
  Report Type: Spontaneous
  Country: US (occurrence: None)
  Receive Date: 20220112
  Receipt Date: 20220112
  Transmission Date: 20220423
  Serious: Yes (unspecified)
  Sender: FDA-Public Use
  Company Number: None

PATIENT
  Age: 63 Year
  Sex: Male
  Weight: 86.5 kg

DRUGS (4)
  1. PRIVIGEN [Suspect]
     Active Substance: HUMAN IMMUNOGLOBULIN G
     Indication: Polymyositis
     Dosage: OTHER FREQUENCY : MONTHLY;?
     Route: 042
     Dates: start: 20211229, end: 20211229
  2. Diphenhydramine 25mg Injection [Concomitant]
     Dates: start: 20211229, end: 20211229
  3. Acetaminophen 325mg [Concomitant]
     Dates: start: 20211229, end: 20211229
  4. Immune Globulin Intravenous (Human) 10% Liquid   PRIVIGEN 20g [Concomitant]
     Dates: start: 20211229, end: 20211229

REACTIONS (4)
  - Urticaria [None]
  - Pruritus [None]
  - Dyspnoea [None]
  - Product lot number issue [None]

NARRATIVE: CASE EVENT DATE: 20211229
